FAERS Safety Report 6196005-3 (Version None)
Quarter: 2009Q2

REPORT INFORMATION
  Report Type: 
  Country: None (occurrence: None)
  Receive Date: 20090520
  Receipt Date: 20030923
  Transmission Date: 20091009
  Serious: Yes (Death)
  Sender: FDA-Public Use
  Company Number: NL-ROCHE-597593

PATIENT
  Sex: Female

DRUGS (2)
  1. CAPECITABINE [Suspect]
     Indication: COLON CANCER
     Dosage: INDICATION: ADVANCED COLON CANCER. LIVER METASTASIS
     Route: 048
     Dates: start: 20030826, end: 20030909
  2. IRINOTECAN HCL [Suspect]
     Indication: COLON CANCER
     Dosage: INDICATION: ADVANCED COLON CANCER. LIVER METASTASIS
     Route: 042
     Dates: start: 20030826, end: 20030916

REACTIONS (1)
  - GENERAL PHYSICAL HEALTH DETERIORATION [None]
